FAERS Safety Report 9795273 (Version 1)
Quarter: 2014Q1

REPORT INFORMATION
  Report Type: Report from Study
  Country: DE (occurrence: DE)
  Receive Date: 20140103
  Receipt Date: 20140103
  Transmission Date: 20141002
  Serious: Yes (Other)
  Sender: FDA-Public Use
  Company Number: DE-ROCHE-1326766

PATIENT
  Age: 41 Year
  Sex: 0

DRUGS (14)
  1. VALGANCICLOVIR [Suspect]
     Indication: CYTOMEGALOVIRUS INFECTION
     Dosage: 2X 900 MG
     Route: 065
  2. VALGANCICLOVIR [Suspect]
     Dosage: 2X450 MG
     Route: 065
  3. VALGANCICLOVIR [Suspect]
     Dosage: 2X900 MG
     Route: 065
  4. GANCICLOVIR [Suspect]
     Indication: ANTIVIRAL PROPHYLAXIS
     Dosage: 2X 500 MG
     Route: 065
  5. CIDOFOVIR [Suspect]
     Indication: CYTOMEGALOVIRUS INFECTION
     Route: 042
  6. FOSCARNET [Suspect]
     Indication: CYTOMEGALOVIRUS INFECTION
     Dosage: 1X6000 MG
     Route: 065
  7. FOSCARNET [Suspect]
     Dosage: 2X9000 MG/ 1X9000 MG
     Route: 065
  8. FOSCARNET [Suspect]
     Dosage: 2X6000 MG
     Route: 065
  9. ACICLOVIR [Suspect]
     Indication: ANTIVIRAL PROPHYLAXIS
     Dosage: 3X400-800 MG
     Route: 065
  10. FLUDARABINE [Concomitant]
     Dosage: DAY - 8 UNTIL DAY- 4
     Route: 065
  11. FLUDARABINE [Concomitant]
     Route: 065
  12. THIOTEPA [Concomitant]
     Dosage: 2X5MG/KG PER DAY
     Route: 065
  13. MELPHALAN [Concomitant]
     Dosage: DAY -2 AND -1
     Route: 065
  14. CYCLOPHOSPHAMIDE [Concomitant]
     Dosage: DAY-3 UNTIL -2
     Route: 065

REACTIONS (1)
  - Drug resistance [Unknown]
